FAERS Safety Report 8427647-X (Version None)
Quarter: 2012Q2

REPORT INFORMATION
  Report Type: 
  Country: None (occurrence: None)
  Receive Date: 20120611
  Receipt Date: 20120605
  Transmission Date: 20120825
  Serious: No
  Sender: FDA-Public Use
  Company Number: US-PFIZER INC-2012135273

PATIENT
  Sex: Female
  Weight: 71.66 kg

DRUGS (2)
  1. IBUPROFEN (ADVIL) [Suspect]
     Indication: INFLAMMATION
  2. IBUPROFEN (ADVIL) [Suspect]
     Indication: PAIN
     Dosage: UNK, AS NEEDED
     Route: 048

REACTIONS (4)
  - PARAESTHESIA ORAL [None]
  - POOR QUALITY DRUG ADMINISTERED [None]
  - THERMAL BURN [None]
  - HYPOAESTHESIA [None]
